FAERS Safety Report 8433651-8 (Version None)
Quarter: 2012Q2

REPORT INFORMATION
  Report Type: 
  Country: None (occurrence: None)
  Receive Date: 20120613
  Receipt Date: 20120608
  Transmission Date: 20120825
  Serious: Yes (Life-Threatening, Other)
  Sender: FDA-Public Use
  Company Number: US-AMGEN-USASP2012011981

PATIENT
  Age: 70 Year
  Sex: Male

DRUGS (1)
  1. XGEVA [Suspect]
     Indication: PROPHYLAXIS
     Dosage: 120 MG, QMO
     Dates: start: 20110614

REACTIONS (7)
  - MUSCULAR WEAKNESS [None]
  - HUNGRY BONE SYNDROME [None]
  - HYPOPHOSPHATAEMIA [None]
  - HYPOCALCAEMIA [None]
  - WHEELCHAIR USER [None]
  - MYOPATHY [None]
  - ACTIVITIES OF DAILY LIVING IMPAIRED [None]
